FAERS Safety Report 21332933 (Version 4)
Quarter: 2023Q1

REPORT INFORMATION
  Report Type: Report from Study
  Country: US (occurrence: US)
  Receive Date: 20220914
  Receipt Date: 20230310
  Transmission Date: 20230417
  Serious: Yes (Other)
  Sender: FDA-Public Use
  Company Number: US-KOREA IPSEN Pharma-2021-30231

PATIENT
  Age: 62 Year
  Sex: Female

DRUGS (3)
  1. SOMATULINE DEPOT [Suspect]
     Active Substance: LANREOTIDE ACETATE
     Indication: Carcinoid tumour of the small bowel
     Dosage: 90 MG/ 0.3 ML
     Route: 058
     Dates: start: 201612
  2. SOMATULINE DEPOT [Suspect]
     Active Substance: LANREOTIDE ACETATE
     Indication: Carcinoid tumour
     Dosage: 120 MG
     Route: 058
     Dates: end: 2021
  3. SOMATULINE DEPOT [Suspect]
     Active Substance: LANREOTIDE ACETATE
     Dosage: 90 MG/ 0.3 ML
     Route: 058
     Dates: start: 2021

REACTIONS (31)
  - Disease progression [Not Recovered/Not Resolved]
  - Neoplasm progression [Recovering/Resolving]
  - Abdominal pain upper [Not Recovered/Not Resolved]
  - Flatulence [Not Recovered/Not Resolved]
  - Injection site scar [Recovering/Resolving]
  - Injection site mass [Recovering/Resolving]
  - Frequent bowel movements [Recovering/Resolving]
  - Injection site haemorrhage [Not Recovered/Not Resolved]
  - Diarrhoea [Not Recovered/Not Resolved]
  - Injection site nodule [Not Recovered/Not Resolved]
  - Temperature intolerance [Not Recovered/Not Resolved]
  - Alopecia [Not Recovered/Not Resolved]
  - Fatigue [Not Recovered/Not Resolved]
  - Emotional disorder [Not Recovered/Not Resolved]
  - Injection site pain [Recovered/Resolved]
  - Red blood cell count decreased [Not Recovered/Not Resolved]
  - Gastrointestinal disorder [Not Recovered/Not Resolved]
  - Depression [Not Recovered/Not Resolved]
  - Discouragement [Not Recovered/Not Resolved]
  - Feeling abnormal [Not Recovered/Not Resolved]
  - Psychiatric symptom [Not Recovered/Not Resolved]
  - Illness [Unknown]
  - Off label use [Unknown]
  - Drug ineffective [Unknown]
  - Illness [Unknown]
  - Nausea [Unknown]
  - Feeling abnormal [Not Recovered/Not Resolved]
  - Product dose omission issue [Unknown]
  - Flatulence [Not Recovered/Not Resolved]
  - Temperature intolerance [Recovered/Resolved]
  - Injection site pain [Unknown]

NARRATIVE: CASE EVENT DATE: 20220501
